FAERS Safety Report 18361053 (Version 1)
Quarter: 2020Q4

REPORT INFORMATION
  Report Type: Report from Study
  Country: IT (occurrence: IT)
  Receive Date: 20201008
  Receipt Date: 20201008
  Transmission Date: 20210114
  Serious: Yes (Other)
  Sender: FDA-Public Use
  Company Number: IT-INCYTE CORPORATION-2018IN012666

PATIENT

DRUGS (7)
  1. AMLODIPINA [AMLODIPINE MESILATE] [Concomitant]
     Indication: HYPERTENSION
     Dosage: 5 OT
     Route: 065
     Dates: start: 2013
  2. INTERFERON [Concomitant]
     Active Substance: INTERFERON
     Indication: POLYCYTHAEMIA VERA
     Dosage: UNK
     Route: 065
     Dates: start: 200405, end: 2009
  3. JAKAVI [Suspect]
     Active Substance: RUXOLITINIB
     Dosage: 20 OT, UNK
     Route: 048
     Dates: start: 20181120
  4. CARDIOASPIRIN [Concomitant]
     Active Substance: ASPIRIN
     Indication: HYPERTENSION
     Dosage: 100 OT
     Route: 065
     Dates: start: 2012
  5. JAKAVI [Suspect]
     Active Substance: RUXOLITINIB
     Indication: POLYCYTHAEMIA VERA
     Dosage: 20 OT, UNK
     Route: 048
     Dates: start: 20181004, end: 20181022
  6. OMNIC [Concomitant]
     Active Substance: TAMSULOSIN HYDROCHLORIDE
     Indication: BENIGN PROSTATIC HYPERPLASIA
     Dosage: 0.4 OT
     Route: 065
     Dates: start: 2016
  7. RABEPRAZOLE [Concomitant]
     Active Substance: RABEPRAZOLE
     Indication: CHRONIC GASTRITIS
     Dosage: 10 OT
     Route: 065
     Dates: start: 2013

REACTIONS (10)
  - Leukocytosis [Recovered/Resolved]
  - Pharyngitis [Recovered/Resolved]
  - Thrombocytosis [Recovered/Resolved]
  - Helicobacter infection [Recovered/Resolved]
  - Anaemia [Recovered/Resolved]
  - Occult blood positive [Not Recovered/Not Resolved]
  - Thrombocytosis [Recovered/Resolved]
  - Helicobacter gastritis [Recovered/Resolved]
  - Pneumonia [Recovered/Resolved]
  - Thrombocytosis [Recovering/Resolving]

NARRATIVE: CASE EVENT DATE: 20181023
